FAERS Safety Report 7228974-4 (Version None)
Quarter: 2011Q1

REPORT INFORMATION
  Report Type: 
  Country: None (occurrence: None)
  Receive Date: 20110117
  Receipt Date: 20110114
  Transmission Date: 20110831
  Serious: Yes (Death, Hospitalization, Other)
  Sender: FDA-Public Use
  Company Number: US-AMGEN-USASP2010001185

PATIENT

DRUGS (8)
  1. NPLATE [Suspect]
     Indication: PANCYTOPENIA
  2. CORTICOSTEROIDS [Concomitant]
     Dosage: UNK
     Dates: start: 20090825
  3. DECADRON [Concomitant]
     Indication: PRODUCT USED FOR UNKNOWN INDICATION
     Dosage: 4 MG, Q6H
  4. PREDNISONE [Concomitant]
     Indication: THROMBOCYTOPENIA
  5. NPLATE [Suspect]
     Indication: THROMBOCYTOPENIA
     Dosage: UNK A?G/KG, UNK
  6. NPLATE [Suspect]
     Indication: GLIOBLASTOMA MULTIFORME
  7. PREDNISONE [Concomitant]
     Indication: PANCYTOPENIA
  8. IMMUNOGLOBULINS [Concomitant]
     Dosage: UNK
     Route: 042
     Dates: start: 20091006, end: 20091008

REACTIONS (8)
  - THROMBOCYTOPENIA [None]
  - ASTHENIA [None]
  - PANCYTOPENIA [None]
  - SOMNOLENCE [None]
  - FATIGUE [None]
  - CONVULSION [None]
  - OEDEMA PERIPHERAL [None]
  - GLIOBLASTOMA MULTIFORME [None]
